FAERS Safety Report 10083444 (Version 1)
Quarter: 2014Q2

REPORT INFORMATION
  Report Type: Spontaneous
  Country: US (occurrence: US)
  Receive Date: 20140417
  Receipt Date: 20140417
  Transmission Date: 20141212
  Serious: No
  Sender: FDA-Public Use
  Company Number: US-009507513-1404USA005252

PATIENT
  Age: 3 Year
  Sex: Female

DRUGS (2)
  1. NASONEX [Suspect]
     Dosage: UNK
     Route: 045
  2. CLARITIN [Suspect]
     Indication: RASH
     Dosage: UNK
     Route: 048

REACTIONS (5)
  - Rash generalised [Unknown]
  - Rash [Unknown]
  - Rash erythematous [Unknown]
  - Headache [Unknown]
  - Drug ineffective [Unknown]
